FAERS Safety Report 4378706-2 (Version None)
Quarter: 2004Q2

REPORT INFORMATION
  Report Type: 
  Country: None (occurrence: None)
  Receive Date: 20040610
  Receipt Date: 20040601
  Transmission Date: 20050107
  Serious: Yes (Other)
  Sender: FDA-Public Use
  Company Number: HQWYE159002JUN04

PATIENT
  Age: 1 Day
  Sex: Female

DRUGS (1)
  1. FULCIN (GRISEOFULVIN (MICROSIZE)) [Suspect]
     Dates: start: 20030101, end: 20030101

REACTIONS (6)
  - CONGENITAL HEARING DISORDER [None]
  - DERMATOMYOSITIS [None]
  - DEVELOPMENTAL COORDINATION DISORDER [None]
  - DRUG EXPOSURE DURING PREGNANCY [None]
  - HYPOTONIA [None]
  - MULTIPLE CONGENITAL ABNORMALITIES [None]
